FAERS Safety Report 12944997 (Version 1)
Quarter: 2016Q4

REPORT INFORMATION
  Report Type: Spontaneous
  Country: US (occurrence: US)
  Receive Date: 20161115
  Receipt Date: 20161115
  Transmission Date: 20170207
  Serious: No
  Sender: FDA-Public Use
  Company Number: None

PATIENT
  Age: 55 Year
  Sex: Male

DRUGS (2)
  1. DAKLINZA [Suspect]
     Active Substance: DACLATASVIR
     Indication: ACUTE HEPATITIS C
  2. DAKLINZA [Suspect]
     Active Substance: DACLATASVIR
     Indication: HYPERTENSION

REACTIONS (1)
  - Headache [None]

NARRATIVE: CASE EVENT DATE: 20161115
